FAERS Safety Report 12110412 (Version 1)
Quarter: 2016Q1

REPORT INFORMATION
  Report Type: Spontaneous
  Country: US (occurrence: US)
  Receive Date: 20160224
  Receipt Date: 20160224
  Transmission Date: 20160526
  Serious: No
  Sender: FDA-Public Use
  Company Number: GXBR2015US002847

PATIENT
  Sex: Male

DRUGS (2)
  1. DESONIDE. [Suspect]
     Active Substance: DESONIDE
     Indication: DRY SKIN
     Dosage: 0.5 UNK, UNK
     Route: 061
  2. DESONIDE. [Suspect]
     Active Substance: DESONIDE
     Indication: PRURITUS

REACTIONS (2)
  - Application site rash [Unknown]
  - Expired product administered [Unknown]
